FAERS Safety Report 9747562 (Version 1)
Quarter: 2013Q4

REPORT INFORMATION
  Report Type: Report from Study
  Country: CA (occurrence: CA)
  Receive Date: 20131212
  Receipt Date: 20131212
  Transmission Date: 20140711
  Serious: Yes (Other)
  Sender: FDA-Public Use
  Company Number: CA-JNJFOC-20131204395

PATIENT
  Age: 38 Year
  Sex: Male
  Weight: 74 kg

DRUGS (3)
  1. REMICADE [Suspect]
     Indication: RHEUMATOID ARTHRITIS
     Route: 042
     Dates: start: 20110624, end: 20131129
  2. METHOTREXATE [Concomitant]
     Route: 058
  3. VOLTAREN [Concomitant]
     Route: 065

REACTIONS (2)
  - C-reactive protein increased [Unknown]
  - Joint swelling [Unknown]
